FAERS Safety Report 7325367-6 (Version None)
Quarter: 2011Q1

REPORT INFORMATION
  Report Type: 
  Country: None (occurrence: None)
  Receive Date: 20110218
  Receipt Date: 20110203
  Transmission Date: 20110831
  Serious: Yes (Other)
  Sender: FDA-Public Use
  Company Number: DSU-2011-01007

PATIENT
  Sex: Female

DRUGS (2)
  1. AMLODIPINE [Concomitant]
  2. ALMETEC (OLMESARTAN MEDOXOMIL) (40 MILLIGRAM, TABLET) (OLMESARTAN MEDO [Suspect]
     Indication: HYPERTENSION
     Dosage: 40 MG (40 MG, QD), PER ORAL
     Route: 048
     Dates: start: 20110101, end: 20110101

REACTIONS (3)
  - MALAISE [None]
  - JAUNDICE [None]
  - LIVER INJURY [None]
